FAERS Safety Report 12654448 (Version 2)
Quarter: 2016Q4

REPORT INFORMATION
  Report Type: Spontaneous
  Country: DE (occurrence: DE)
  Receive Date: 20160816
  Receipt Date: 20161221
  Transmission Date: 20170207
  Serious: Yes (Other)
  Sender: FDA-Public Use
  Company Number: DE-UCBSA-2016031214

PATIENT
  Age: 74 Year
  Sex: Female

DRUGS (4)
  1. LEVETIRACETAM UCB [Suspect]
     Active Substance: LEVETIRACETAM
     Dosage: DOWN TITRATED FROM 5000 MG  TO 2000 MG DAILY
  2. LAMOTRIGINE. [Concomitant]
     Active Substance: LAMOTRIGINE
     Indication: PRODUCT USED FOR UNKNOWN INDICATION
     Dosage: UNK
  3. LEVETIRACETAM. [Suspect]
     Active Substance: LEVETIRACETAM
     Indication: PRODUCT USED FOR UNKNOWN INDICATION
     Dosage: UNK
  4. LEVETIRACETAM UCB [Suspect]
     Active Substance: LEVETIRACETAM
     Indication: PRODUCT USED FOR UNKNOWN INDICATION
     Dosage: 5000 MG DAILY

REACTIONS (5)
  - Withdrawal syndrome [Recovered/Resolved]
  - Off label use [Unknown]
  - Delusion [Recovered/Resolved]
  - Aggression [Recovered/Resolved]
  - Accidental overdose [Unknown]
